FAERS Safety Report 6616257-2 (Version None)
Quarter: 2010Q1

REPORT INFORMATION
  Report Type: 
  Country: None (occurrence: None)
  Receive Date: 20100305
  Receipt Date: 20100224
  Transmission Date: 20100710
  Serious: Yes (Hospitalization)
  Sender: FDA-Public Use
  Company Number: US-WATSON-2010-02228

PATIENT
  Age: 65 Year
  Sex: Male

DRUGS (2)
  1. METOPROLOL SUCCINATE (WATSON LABORATORIES) [Suspect]
     Indication: HYPERTENSION
     Dosage: 1 TABLET, DAILY FOR 6-8 DAYS TOTAL
     Route: 048
     Dates: start: 20100101, end: 20100101
  2. LISINOPRIL [Concomitant]
     Indication: HYPERTENSION
     Dosage: 20 MG, QAM
     Route: 048

REACTIONS (5)
  - DRUG INEFFECTIVE [None]
  - FEELING ABNORMAL [None]
  - HEART RATE INCREASED [None]
  - HYPERTENSION [None]
  - REACTION TO DRUG EXCIPIENTS [None]
